FAERS Safety Report 6557909-2 (Version None)
Quarter: 2010Q1

REPORT INFORMATION
  Report Type: 
  Country: None (occurrence: None)
  Receive Date: 20100125
  Receipt Date: 20100105
  Transmission Date: 20100710
  Serious: No
  Sender: FDA-Public Use
  Company Number: 2010-00007

PATIENT
  Age: 65 Year
  Sex: Male
  Weight: 87.0906 kg

DRUGS (2)
  1. COLD REMEDY RAPIDMELTS WITH VITAMIN C [Suspect]
     Dosage: SPORADIC-ON/OFF
     Dates: start: 20060101, end: 20080101
  2. TENEX [Concomitant]

REACTIONS (1)
  - AGEUSIA [None]
